FAERS Safety Report 19114794 (Version 1)
Quarter: 2021Q2

REPORT INFORMATION
  Report Type: Spontaneous
  Country: US (occurrence: US)
  Receive Date: 20210409
  Receipt Date: 20210409
  Transmission Date: 20210717
  Serious: Yes (Hospitalization)
  Sender: FDA-Public Use
  Company Number: US-Y-MABS THERAPEUTICS-2109108

PATIENT
  Sex: Female

DRUGS (6)
  1. DANYELZA [Suspect]
     Active Substance: NAXITAMAB-GQGK
     Indication: NEUROBLASTOMA
  2. EPINEPHRINE. [Concomitant]
     Active Substance: EPINEPHRINE
  3. LEUKINE [Concomitant]
     Active Substance: SARGRAMOSTIM
  4. METHYLPREDNISOLONE SODIUM SUCCINATE. [Concomitant]
     Active Substance: METHYLPREDNISOLONE SODIUM SUCCINATE
  5. BENADRYL [Concomitant]
     Active Substance: DIPHENHYDRAMINE HYDROCHLORIDE
  6. HYDROCORTISONE (HYDROCORTISONE ACETATE) [Concomitant]
     Active Substance: HYDROCORTISONE ACETATE

REACTIONS (1)
  - Anaphylactic reaction [Recovered/Resolved]
